FAERS Safety Report 25295675 (Version 3)
Quarter: 2025Q3

REPORT INFORMATION
  Report Type: Spontaneous
  Country: US (occurrence: US)
  Receive Date: 20250511
  Receipt Date: 20250816
  Transmission Date: 20251021
  Serious: No
  Sender: SANOFI AVENTIS
  Company Number: US-SA-2025SA131967

PATIENT
  Age: 61 Year
  Sex: Female

DRUGS (8)
  1. REZUROCK [Suspect]
     Active Substance: BELUMOSUDIL
     Indication: Acute lymphocytic leukaemia
     Dosage: 200 MG, BID
     Route: 048
  2. PROTONIX [Concomitant]
     Active Substance: PANTOPRAZOLE SODIUM
  3. CLARITIN [Concomitant]
     Active Substance: LORATADINE
  4. MOTRIN IB [Concomitant]
     Active Substance: IBUPROFEN
  5. XIIDRA [Concomitant]
     Active Substance: LIFITEGRAST
     Route: 047
  6. FLONASE [Concomitant]
     Active Substance: FLUTICASONE PROPIONATE
  7. JAKAFI [Concomitant]
     Active Substance: RUXOLITINIB
  8. PEPCID [Concomitant]
     Active Substance: FAMOTIDINE

REACTIONS (4)
  - Nasal discharge discolouration [Not Recovered/Not Resolved]
  - Nasal congestion [Not Recovered/Not Resolved]
  - Fatigue [Unknown]
  - Product use in unapproved indication [Unknown]
